FAERS Safety Report 8853778 (Version 2)
Quarter: 2012Q4

REPORT INFORMATION
  Report Type: 
  Country: US (occurrence: US)
  Receive Date: 20121023
  Receipt Date: 20121224
  Transmission Date: 20130627
  Serious: Yes (Other)
  Sender: FDA-Public Use
  Company Number: US-ELI_LILLY_AND_COMPANY-US201210003873

PATIENT
  Age: 69 Year
  Sex: Male
  Weight: 101 kg

DRUGS (5)
  1. CYMBALTA [Suspect]
     Indication: DEPRESSION
     Dosage: 30 mg, UNK
  2. CYMBALTA [Suspect]
     Dosage: 60 mg, qd
  3. ASPIRIN [Concomitant]
  4. ATORVASTATIN CALCIUM [Concomitant]
     Dosage: 40 mg, qd
  5. SYNTHROID [Concomitant]

REACTIONS (4)
  - Alanine aminotransferase increased [Recovered/Resolved]
  - Aspartate aminotransferase increased [Recovered/Resolved]
  - Gallbladder disorder [Recovered/Resolved]
  - Diarrhoea [Unknown]
